FAERS Safety Report 18437938 (Version 1)
Quarter: 2020Q4

REPORT INFORMATION
  Report Type: Spontaneous
  Country: IT (occurrence: IT)
  Receive Date: 20201028
  Receipt Date: 20201028
  Transmission Date: 20210114
  Serious: Yes (Hospitalization)
  Sender: FDA-Public Use
  Company Number: IT-ASTRAZENECA-2020SF39711

PATIENT
  Age: 63 Year
  Sex: Female

DRUGS (7)
  1. BRILIQUE [Suspect]
     Active Substance: TICAGRELOR
     Indication: THROMBOSIS PROPHYLAXIS
     Route: 048
     Dates: start: 20200915, end: 20201015
  2. LASIX [Concomitant]
     Active Substance: FUROSEMIDE
     Route: 065
  3. LUVION [Concomitant]
     Route: 065
  4. TORVAST [Concomitant]
     Active Substance: ATORVASTATIN
     Route: 065
  5. CONGESCOR [Concomitant]
     Active Substance: BISOPROLOL
     Route: 065
  6. CARDIOASPIRIN [Suspect]
     Active Substance: ASPIRIN
     Indication: THROMBOSIS PROPHYLAXIS
     Route: 048
     Dates: start: 20170101, end: 20201015
  7. RANEXA [Concomitant]
     Active Substance: RANOLAZINE
     Route: 065

REACTIONS (2)
  - Melaena [Recovering/Resolving]
  - Anaemia [Recovering/Resolving]

NARRATIVE: CASE EVENT DATE: 20201015
